FAERS Safety Report 5428429-3 (Version None)
Quarter: 2007Q3

REPORT INFORMATION
  Report Type: 
  Country: None (occurrence: None)
  Receive Date: 20070731
  Receipt Date: 20070501
  Transmission Date: 20080115
  Serious: No
  Sender: FDA-Public Use
  Company Number: US200705000167

PATIENT
  Age: 72 Year
  Sex: Female
  Weight: 74.4 kg

DRUGS (14)
  1. BYETTA [Suspect]
     Indication: TYPE 2 DIABETES MELLITUS
     Dosage: 5 UG, 2/D, SUBCUTANEOUS
     Route: 058
     Dates: start: 20070201
  2. EXENATIDE 5MCG PEN, DISPOSABLE DEVICE (EXENATIDE PEN (5MCG)) PEN, DISP [Concomitant]
  3. ZOLOFT [Concomitant]
  4. ZOCOR [Concomitant]
  5. NEXIUM [Concomitant]
  6. AMITRIPTYLINE HYDROCHLORIDE [Concomitant]
  7. AMBIEN [Concomitant]
  8. LISINOPRIL [Concomitant]
  9. STOOL SOFTENER (DOCUSATE SODIUM) [Concomitant]
  10. MULTIVITAMIN [Concomitant]
  11. GLIMEPIRIDE [Concomitant]
  12. ASPIRIN [Concomitant]
  13. LEVOTHROID [Concomitant]
  14. TOPROL-XL [Concomitant]

REACTIONS (3)
  - HAEMOGLOBIN DECREASED [None]
  - RENAL DISORDER [None]
  - WAIST CIRCUMFERENCE INCREASED [None]
